FAERS Safety Report 8835732 (Version 8)
Quarter: 2014Q1

REPORT INFORMATION
  Report Type: Spontaneous
  Country: US (occurrence: US)
  Receive Date: 20121011
  Receipt Date: 20140130
  Transmission Date: 20141002
  Serious: Yes (Hospitalization, Disabling, Other)
  Sender: FDA-Public Use
  Company Number: US-009507513-1210USA002467

PATIENT
  Sex: Female
  Weight: 54.42 kg

DRUGS (2)
  1. FOSAMAX [Suspect]
     Indication: OSTEOPOROSIS
     Dosage: 70 MG, QW
     Route: 048
     Dates: start: 19991129, end: 20100107
  2. ALENDRONATE SODIUM [Suspect]
     Indication: OSTEOPOROSIS
     Dosage: 70 MG, QW
     Route: 048

REACTIONS (39)
  - Femur fracture [Not Recovered/Not Resolved]
  - Osteoporosis [Not Recovered/Not Resolved]
  - Multiple fractures [Not Recovered/Not Resolved]
  - Open reduction of fracture [Unknown]
  - Open reduction of fracture [Unknown]
  - Anaemia postoperative [Recovered/Resolved]
  - Fall [Not Recovered/Not Resolved]
  - Hypomagnesaemia [Recovering/Resolving]
  - Renal failure acute [Recovering/Resolving]
  - Hypokalaemia [Recovering/Resolving]
  - Dehydration [Recovering/Resolving]
  - Clostridium difficile colitis [Recovering/Resolving]
  - Dermatitis [Unknown]
  - Vitamin B12 deficiency [Unknown]
  - Constipation [Unknown]
  - Hypothyroidism [Unknown]
  - Vitamin D deficiency [Unknown]
  - Osteoarthritis [Unknown]
  - Adenotonsillectomy [Unknown]
  - Appendicectomy [Unknown]
  - Uterine dilation and curettage [Unknown]
  - Hysterectomy [Unknown]
  - Haemorrhoid operation [Unknown]
  - Rhinoplasty [Unknown]
  - Transient ischaemic attack [Unknown]
  - Dementia [Unknown]
  - Iron deficiency anaemia [Unknown]
  - Asthma [Unknown]
  - Chronic obstructive pulmonary disease [Unknown]
  - Glaucoma [Unknown]
  - Rheumatic fever [Unknown]
  - Cervical vertebral fracture [Unknown]
  - Rib fracture [Unknown]
  - Osteopenia [Unknown]
  - Ankle fracture [Unknown]
  - Ankle operation [Unknown]
  - Facial bones fracture [Unknown]
  - Drug hypersensitivity [Unknown]
  - Gastrooesophageal reflux disease [Unknown]
